FAERS Safety Report 6843931-5 (Version None)
Quarter: 2010Q3

REPORT INFORMATION
  Report Type: 
  Country: None (occurrence: None)
  Receive Date: 20100715
  Receipt Date: 20100705
  Transmission Date: 20110219
  Serious: Yes (Hospitalization)
  Sender: FDA-Public Use
  Company Number: US-SANOFI-AVENTIS-2010SA038152

PATIENT
  Sex: Male

DRUGS (2)
  1. PLAVIX [Suspect]
     Route: 048
     Dates: start: 20100601
  2. ASPIRIN [Suspect]
     Route: 048
     Dates: start: 20100601

REACTIONS (2)
  - CARDIAC DISORDER [None]
  - PAIN IN EXTREMITY [None]
